FAERS Safety Report 4645713-1 (Version None)
Quarter: 2005Q2

REPORT INFORMATION
  Report Type: 
  Country: None (occurrence: None)
  Receive Date: 20050427
  Receipt Date: 20050415
  Transmission Date: 20051028
  Serious: Yes (Death, Life-Threatening, Hospitalization)
  Sender: FDA-Public Use
  Company Number: JP-JNJFOC-20040301708

PATIENT
  Sex: Male
  Weight: 56.5 kg

DRUGS (23)
  1. REMICADE [Suspect]
     Route: 041
     Dates: start: 20031204
  2. REMICADE [Suspect]
     Route: 041
     Dates: start: 20031204
  3. REMICADE [Suspect]
     Indication: RHEUMATOID ARTHRITIS
     Route: 041
     Dates: start: 20031204
  4. RHEUMATREX [Suspect]
     Route: 049
     Dates: start: 19970804, end: 20040212
  5. RHEUMATREX [Suspect]
     Route: 049
     Dates: start: 19970804, end: 20040212
  6. RHEUMATREX [Suspect]
     Route: 049
     Dates: start: 19970804, end: 20040212
  7. RHEUMATREX [Suspect]
     Route: 049
     Dates: start: 19970804, end: 20040212
  8. RHEUMATREX [Suspect]
     Route: 049
     Dates: start: 19970804, end: 20040212
  9. RHEUMATREX [Suspect]
     Indication: RHEUMATOID ARTHRITIS
     Route: 049
     Dates: start: 19970804, end: 20040212
  10. MEDROL [Suspect]
     Indication: RHEUMATOID ARTHRITIS
     Route: 049
     Dates: start: 20001203, end: 20040213
  11. HYPEN [Concomitant]
     Route: 049
     Dates: start: 20031203, end: 20040216
  12. ONEALPHA [Concomitant]
     Route: 049
     Dates: start: 20031203, end: 20040216
  13. CYTOTEC [Concomitant]
     Route: 049
     Dates: start: 20031203, end: 20040216
  14. OMEPRAL [Concomitant]
     Route: 049
     Dates: start: 20031203, end: 20040216
  15. TINELAC [Concomitant]
     Route: 049
     Dates: start: 20031203, end: 20040216
  16. CYANOCOBALAMIN [Concomitant]
     Route: 049
     Dates: start: 20031203, end: 20040216
  17. WANARUFA [Concomitant]
     Route: 049
  18. OMEPRAZINE [Concomitant]
     Route: 049
  19. CHINERAKKU [Concomitant]
     Route: 049
  20. BAKUTA [Concomitant]
     Route: 049
  21. BENIRON [Concomitant]
     Route: 042
  22. BENIRON [Concomitant]
     Route: 042
  23. BENIRON [Concomitant]
     Route: 042

REACTIONS (7)
  - ADRENAL INSUFFICIENCY [None]
  - CARDIAC ARREST [None]
  - INTERSTITIAL LUNG DISEASE [None]
  - OSTEOARTHRITIS [None]
  - PNEUMONIA CHLAMYDIAL [None]
  - PULMONARY MYCOSIS [None]
  - SYSTEMIC INFLAMMATORY RESPONSE SYNDROME [None]
